FAERS Safety Report 11408651 (Version 2)
Quarter: 2016Q1

REPORT INFORMATION
  Report Type: Spontaneous
  Country: US (occurrence: US)
  Receive Date: 20150822
  Receipt Date: 20160114
  Transmission Date: 20160525
  Serious: No
  Sender: FDA-Public Use
  Company Number: US-009507513-1508USA004888

PATIENT
  Age: 16 Year
  Sex: Female
  Weight: 47.17 kg

DRUGS (1)
  1. NEXPLANON [Suspect]
     Active Substance: ETONOGESTREL
     Indication: CONTRACEPTION
     Dosage: 1 ROD ONCE
     Route: 059
     Dates: start: 20150804

REACTIONS (6)
  - Rash [Recovered/Resolved]
  - Implant site swelling [Unknown]
  - Implant site bruising [Unknown]
  - Implant site pruritus [Unknown]
  - Device deployment issue [Not Recovered/Not Resolved]
  - Complication associated with device [Not Recovered/Not Resolved]

NARRATIVE: CASE EVENT DATE: 201508
